FAERS Safety Report 9144603 (Version 1)
Quarter: 2013Q1

REPORT INFORMATION
  Report Type: Spontaneous
  Country: JP (occurrence: JP)
  Receive Date: 20130306
  Receipt Date: 20130306
  Transmission Date: 20140127
  Serious: Yes (Life-Threatening, Hospitalization, Disabling)
  Sender: FDA-Public Use
  Company Number: JP-ROCHE-1175641

PATIENT
  Age: 41 Year
  Sex: Male
  Weight: 52 kg

DRUGS (7)
  1. AVASTIN [Suspect]
     Indication: LUNG ADENOCARCINOMA METASTATIC
     Route: 041
     Dates: start: 20120806, end: 20120806
  2. ALIMTA [Suspect]
     Indication: LUNG ADENOCARCINOMA METASTATIC
     Route: 041
     Dates: start: 20120806, end: 20120806
  3. CISPLATIN [Concomitant]
     Indication: LUNG ADENOCARCINOMA METASTATIC
     Route: 041
     Dates: start: 20120806, end: 20120806
  4. PRIMOBOLAN [Concomitant]
     Indication: APLASTIC ANAEMIA
     Route: 048
  5. GLAKAY [Concomitant]
     Indication: APLASTIC ANAEMIA
     Route: 048
  6. OMEPRAZOLE [Concomitant]
     Indication: APLASTIC ANAEMIA
     Route: 048
     Dates: start: 20090612
  7. ONEALFA [Concomitant]
     Indication: APLASTIC ANAEMIA
     Route: 048
     Dates: start: 20090703

REACTIONS (4)
  - Cerebral infarction [Recovered/Resolved with Sequelae]
  - Haemoptysis [Recovering/Resolving]
  - Bone marrow failure [Recovered/Resolved]
  - Febrile neutropenia [Recovered/Resolved]
